FAERS Safety Report 15492841 (Version 7)
Quarter: 2019Q2

REPORT INFORMATION
  Report Type: Spontaneous
  Country: JP (occurrence: JP)
  Receive Date: 20181012
  Receipt Date: 20190517
  Transmission Date: 20190711
  Serious: Yes (Life-Threatening, Hospitalization, Other)
  Sender: FDA-Public Use
  Company Number: JP-CELGENEUS-JPN-20181002025

PATIENT
  Age: 76 Year
  Sex: Male
  Weight: 60 kg

DRUGS (97)
  1. FEBUXOSTAT. [Concomitant]
     Active Substance: FEBUXOSTAT
     Dosage: 20 MILLIGRAM
     Route: 065
     Dates: start: 20180816, end: 20181206
  2. SOLDEM 3A [Concomitant]
     Active Substance: CARBOHYDRATES\POTASSIUM CHLORIDE\SODIUM CHLORIDE\SODIUM LACTATE
     Indication: PROPHYLAXIS
     Route: 065
     Dates: start: 20180730
  3. REBAMIPIDE [Concomitant]
     Active Substance: REBAMIPIDE
     Indication: CHRONIC GASTRITIS
     Dosage: 300 MILLIGRAM
     Route: 065
     Dates: start: 20180801
  4. TRAZODONE [Concomitant]
     Active Substance: TRAZODONE HYDROCHLORIDE
     Indication: INSOMNIA
     Dosage: 25 MILLIGRAM
     Route: 065
     Dates: start: 20181016
  5. OMEPRAZOLE. [Concomitant]
     Active Substance: OMEPRAZOLE
     Dosage: 20 MILLIGRAM
     Route: 065
     Dates: start: 20181206, end: 20181206
  6. NOVOLIN [Concomitant]
     Active Substance: INSULIN HUMAN
     Indication: HYPERGLYCAEMIA
     Route: 065
     Dates: start: 20181206
  7. CUBICIN [Concomitant]
     Active Substance: DAPTOMYCIN
     Dosage: 300 MILLIGRAM
     Route: 065
     Dates: start: 20181217, end: 20181218
  8. MINOCYCLINE HCL [Concomitant]
     Active Substance: MINOCYCLINE HYDROCHLORIDE
     Dosage: 200 MILLIGRAM
     Route: 065
     Dates: start: 20190101, end: 20190102
  9. CALONAL [Concomitant]
     Active Substance: ACETAMINOPHEN
     Indication: FEBRILE NEUTROPENIA
     Dosage: 800 MILLIGRAM
     Route: 065
     Dates: start: 20180920, end: 20180920
  10. CALONAL [Concomitant]
     Active Substance: ACETAMINOPHEN
     Dosage: 1200 MILLIGRAM
     Route: 065
     Dates: start: 20181002, end: 20181002
  11. CALONAL [Concomitant]
     Active Substance: ACETAMINOPHEN
     Dosage: 400 MILLIGRAM
     Route: 065
     Dates: start: 20181008, end: 20181009
  12. CALONAL [Concomitant]
     Active Substance: ACETAMINOPHEN
     Dosage: 800 MILLIGRAM
     Route: 065
     Dates: start: 20181023, end: 20181023
  13. ACELIO [Concomitant]
     Active Substance: ACETAMINOPHEN
     Dosage: 1600 MILLIGRAM
     Route: 065
     Dates: start: 20181218, end: 20181218
  14. ACELIO [Concomitant]
     Active Substance: ACETAMINOPHEN
     Dosage: 2400 MILLIGRAM
     Route: 065
     Dates: start: 20181220, end: 20181221
  15. VENETOCLAX. [Concomitant]
     Active Substance: VENETOCLAX
     Indication: ACUTE MYELOID LEUKAEMIA
     Dosage: 1 DOSAGE FORMS
     Route: 048
     Dates: start: 20180731, end: 20180731
  16. VENETOCLAX. [Concomitant]
     Active Substance: VENETOCLAX
     Dosage: 1 DOSAGE FORMS
     Route: 048
     Dates: start: 20180801, end: 20180801
  17. ACETAMINOPHEN. [Concomitant]
     Active Substance: ACETAMINOPHEN
     Indication: FEBRILE NEUTROPENIA
     Dosage: 400 MILLIGRAM
     Route: 065
     Dates: start: 20180904, end: 20180904
  18. ACETAMINOPHEN. [Concomitant]
     Active Substance: ACETAMINOPHEN
     Dosage: 400 MILLIGRAM
     Route: 065
     Dates: start: 20180923, end: 20180923
  19. ACETAMINOPHEN. [Concomitant]
     Active Substance: ACETAMINOPHEN
     Dosage: 400 MILLIGRAM
     Route: 065
     Dates: start: 20180928, end: 20180928
  20. ACETAMINOPHEN. [Concomitant]
     Active Substance: ACETAMINOPHEN
     Dosage: 800 MILLIGRAM
     Route: 065
     Dates: start: 20181206, end: 20181207
  21. LEVOFLOXACIN HEMIHYDRATE [Concomitant]
     Active Substance: LEVOFLOXACIN
     Indication: PROPHYLAXIS
     Dosage: 500 MILLIGRAM
     Route: 065
     Dates: start: 20180914
  22. CALONAL [Concomitant]
     Active Substance: ACETAMINOPHEN
     Dosage: 400 MILLIGRAM
     Route: 065
     Dates: start: 20180923, end: 20180923
  23. CALONAL [Concomitant]
     Active Substance: ACETAMINOPHEN
     Dosage: 800 MILLIGRAM
     Route: 065
     Dates: start: 20180929, end: 20180930
  24. CALONAL [Concomitant]
     Active Substance: ACETAMINOPHEN
     Dosage: 800 MILLIGRAM
     Route: 065
     Dates: start: 20181007, end: 20181007
  25. ACELIO [Concomitant]
     Active Substance: ACETAMINOPHEN
     Dosage: 800 MILLIGRAM
     Route: 065
     Dates: start: 20181225, end: 20181225
  26. VIDAZA [Suspect]
     Active Substance: AZACITIDINE
     Indication: ACUTE MYELOID LEUKAEMIA
     Dosage: 75 MILLIGRAM/SQ. METER
     Route: 041
     Dates: start: 20180731, end: 20180906
  27. MOSAPRIDE CITRATE [Concomitant]
     Active Substance: MOSAPRIDE CITRATE
     Indication: CHRONIC GASTRITIS
     Dosage: 15 MILLIGRAM
     Route: 065
     Dates: start: 2015
  28. AZELNIDIPINE [Concomitant]
     Active Substance: AZELNIDIPINE
     Indication: HYPERTENSION
     Dosage: 16 MILLIGRAM
     Route: 065
     Dates: start: 20180730
  29. CALCIUM GLUCONATE. [Concomitant]
     Active Substance: CALCIUM GLUCONATE
     Dosage: 15 MILLILITER
     Route: 065
     Dates: start: 20180917, end: 20180921
  30. TAZOBACTAM SODIUM AND PIPERACILLIN SODIUM [Concomitant]
     Active Substance: PIPERACILLIN SODIUM\TAZOBACTAM SODIUM
     Dosage: 9 GRAM
     Route: 065
     Dates: start: 20180914, end: 20180914
  31. HEPARIN SODIUM. [Concomitant]
     Active Substance: HEPARIN SODIUM
     Indication: COAGULOPATHY
     Dosage: 10 MILLILITER
     Route: 065
     Dates: start: 20180805
  32. ACETAMINOPHEN. [Concomitant]
     Active Substance: ACETAMINOPHEN
     Dosage: 800 MILLIGRAM
     Route: 065
     Dates: start: 20180920, end: 20180920
  33. ACETAMINOPHEN. [Concomitant]
     Active Substance: ACETAMINOPHEN
     Dosage: 400 MILLIGRAM
     Route: 065
     Dates: start: 20180921, end: 20180921
  34. OMEPRAZOLE. [Concomitant]
     Active Substance: OMEPRAZOLE
     Indication: CHRONIC GASTRITIS
     Dosage: 40 MILLIGRAM
     Route: 065
     Dates: start: 20181207
  35. HISHIPHAGEN [Concomitant]
     Indication: LIVER INJURY
     Dosage: 80 MILLILITER
     Route: 065
     Dates: start: 20181221
  36. MINOCYCLINE HCL [Concomitant]
     Active Substance: MINOCYCLINE HYDROCHLORIDE
     Indication: FEBRILE NEUTROPENIA
     Dosage: 200 MILLIGRAM
     Route: 065
     Dates: start: 20190102
  37. NOVORAPID [Concomitant]
     Active Substance: INSULIN ASPART
     Indication: HYPERGLYCAEMIA
     Route: 065
     Dates: start: 20190104
  38. ISOTONIC SODIUM CHLORIDE [Concomitant]
     Active Substance: SODIUM CHLORIDE
     Dosage: 100 MILLILITER
     Route: 065
     Dates: start: 20180805
  39. CALONAL [Concomitant]
     Active Substance: ACETAMINOPHEN
     Dosage: 400 MILLIGRAM
     Route: 065
     Dates: start: 20180921, end: 20180921
  40. ACELIO [Concomitant]
     Active Substance: ACETAMINOPHEN
     Dosage: 1600 MILLIGRAM
     Route: 065
     Dates: start: 20181201, end: 20181201
  41. ACELIO [Concomitant]
     Active Substance: ACETAMINOPHEN
     Dosage: 800 MILLIGRAM
     Route: 065
     Dates: start: 20181209, end: 20181211
  42. ACELIO [Concomitant]
     Active Substance: ACETAMINOPHEN
     Dosage: 800 MILLIGRAM
     Route: 065
     Dates: start: 20181219, end: 20181219
  43. ACELIO [Concomitant]
     Active Substance: ACETAMINOPHEN
     Dosage: 1600 MILLIGRAM
     Route: 065
     Dates: start: 20181227, end: 20181228
  44. REBAMIPIDE [Concomitant]
     Active Substance: REBAMIPIDE
     Dosage: 30 MILLIGRAM
     Route: 065
     Dates: start: 20180801
  45. CALCIUM GLUCONATE. [Concomitant]
     Active Substance: CALCIUM GLUCONATE
     Dosage: 15 MILLILITER
     Route: 065
     Dates: start: 20181207, end: 20181207
  46. TAZOBACTAM SODIUM AND PIPERACILLIN SODIUM [Concomitant]
     Active Substance: PIPERACILLIN SODIUM\TAZOBACTAM SODIUM
     Indication: FEBRILE NEUTROPENIA
     Dosage: 4.5 GRAM
     Route: 065
     Dates: start: 20180731, end: 20180731
  47. TAZOBACTAM SODIUM AND PIPERACILLIN SODIUM [Concomitant]
     Active Substance: PIPERACILLIN SODIUM\TAZOBACTAM SODIUM
     Dosage: 4.5 GRAM
     Route: 065
     Dates: start: 20180920, end: 20180920
  48. POLAPREZINC [Concomitant]
     Active Substance: POLAPREZINC
     Indication: CHRONIC GASTRITIS
     Dosage: 150 MILLIGRAM
     Route: 065
     Dates: start: 20180801
  49. CASPOFUNGIN ACETATE. [Concomitant]
     Active Substance: CASPOFUNGIN ACETATE
     Indication: BRONCHOPULMONARY ASPERGILLOSIS
     Dosage: 50 MILLIGRAM
     Route: 065
     Dates: start: 20180804, end: 20180930
  50. ACETAMINOPHEN. [Concomitant]
     Active Substance: ACETAMINOPHEN
     Dosage: 800 MILLIGRAM
     Route: 065
     Dates: start: 20181209
  51. MINOCYCLINE HCL [Concomitant]
     Active Substance: MINOCYCLINE HYDROCHLORIDE
     Dosage: 200 MILLIGRAM
     Route: 065
     Dates: start: 20181215, end: 20181231
  52. ISOTONIC SODIUM CHLORIDE [Concomitant]
     Active Substance: SODIUM CHLORIDE
     Dosage: 20 MILLILITER
     Route: 065
     Dates: start: 20180805
  53. CALONAL [Concomitant]
     Active Substance: ACETAMINOPHEN
     Dosage: 400 MILLIGRAM
     Route: 065
     Dates: start: 20180928, end: 20180928
  54. CALONAL [Concomitant]
     Active Substance: ACETAMINOPHEN
     Dosage: 400 MILLIGRAM
     Route: 065
     Dates: start: 20181024, end: 20181024
  55. VIDAZA [Suspect]
     Active Substance: AZACITIDINE
     Dosage: 75 MILLIGRAM/SQ. METER
     Route: 041
     Dates: start: 20181112, end: 20181118
  56. CALCIUM GLUCONATE. [Concomitant]
     Active Substance: CALCIUM GLUCONATE
     Dosage: 15 MILLILITER
     Route: 065
     Dates: start: 20180923, end: 20181004
  57. TAZOBACTAM SODIUM AND PIPERACILLIN SODIUM [Concomitant]
     Active Substance: PIPERACILLIN SODIUM\TAZOBACTAM SODIUM
     Dosage: 18 GRAM
     Route: 065
     Dates: start: 20180801, end: 20180831
  58. ZOLPIDEM TARTRATE. [Concomitant]
     Active Substance: ZOLPIDEM TARTRATE
     Indication: INSOMNIA
     Dosage: 10 MILLIGRAM
     Route: 065
     Dates: start: 20180801, end: 20181015
  59. MAGNESIUM OXIDE. [Concomitant]
     Active Substance: MAGNESIUM OXIDE
     Dosage: 1500 MILLIGRAM
     Route: 065
     Dates: start: 20180811, end: 20181004
  60. ACETAMINOPHEN. [Concomitant]
     Active Substance: ACETAMINOPHEN
     Dosage: 800 MILLIGRAM
     Route: 065
     Dates: start: 20181007, end: 20181007
  61. ACETAMINOPHEN. [Concomitant]
     Active Substance: ACETAMINOPHEN
     Dosage: 400 MILLIGRAM
     Route: 065
     Dates: start: 20181008, end: 20181009
  62. WHITE PETROLATUM [Concomitant]
     Active Substance: PETROLATUM
     Indication: DRY SKIN
     Route: 065
     Dates: start: 20181208
  63. ISOTONIC SODIUM CHLORIDE [Concomitant]
     Active Substance: SODIUM CHLORIDE
     Dosage: 200 MILLILITER
     Route: 065
     Dates: start: 20180805
  64. ACELIO [Concomitant]
     Active Substance: ACETAMINOPHEN
     Dosage: 800 MILLIGRAM
     Route: 065
     Dates: start: 20181215, end: 20181215
  65. ACELIO [Concomitant]
     Active Substance: ACETAMINOPHEN
     Dosage: 1600 MILLIGRAM
     Route: 065
     Dates: start: 20181216, end: 20181216
  66. ACELIO [Concomitant]
     Active Substance: ACETAMINOPHEN
     Dosage: 1600 MILLIGRAM
     Route: 065
     Dates: start: 20181222, end: 20181224
  67. VENETOCLAX. [Concomitant]
     Active Substance: VENETOCLAX
     Dosage: 1 DOSAGE FORMS
     Route: 048
     Dates: start: 20181112, end: 20181206
  68. MAGNESIUM OXIDE. [Concomitant]
     Active Substance: MAGNESIUM OXIDE
     Indication: CONSTIPATION
     Dosage: 500 MILLIGRAM
     Route: 065
     Dates: start: 20180803, end: 20180822
  69. ACETAMINOPHEN. [Concomitant]
     Active Substance: ACETAMINOPHEN
     Dosage: 800 MILLIGRAM
     Route: 065
     Dates: start: 20180905, end: 20180906
  70. ACETAMINOPHEN. [Concomitant]
     Active Substance: ACETAMINOPHEN
     Dosage: 1200 MILLIGRAM
     Route: 065
     Dates: start: 20181004, end: 20181004
  71. HEPARINOID [Concomitant]
     Active Substance: CHONDROITIN SULFATE (BOVINE)
     Indication: DRY SKIN
     Route: 065
     Dates: start: 20180912
  72. MINOCYCLINE HCL [Concomitant]
     Active Substance: MINOCYCLINE HYDROCHLORIDE
     Dosage: 200 MILLIGRAM
     Route: 065
     Dates: start: 20181214, end: 20181214
  73. MINOCYCLINE HCL [Concomitant]
     Active Substance: MINOCYCLINE HYDROCHLORIDE
     Dosage: 200 MILLIGRAM
     Route: 065
     Dates: start: 20181208, end: 20181213
  74. MINOCYCLINE HCL [Concomitant]
     Active Substance: MINOCYCLINE HYDROCHLORIDE
     Dosage: 200 MILLIGRAM
     Route: 065
     Dates: start: 20181207, end: 20181207
  75. CALONAL [Concomitant]
     Active Substance: ACETAMINOPHEN
     Dosage: 1200 MILLIGRAM
     Route: 065
     Dates: start: 20181004, end: 20181004
  76. ACELIO [Concomitant]
     Active Substance: ACETAMINOPHEN
     Indication: FEBRILE NEUTROPENIA
     Dosage: 800 MILLIGRAM
     Route: 065
     Dates: start: 20181005, end: 20181005
  77. ACELIO [Concomitant]
     Active Substance: ACETAMINOPHEN
     Dosage: 800 MILLIGRAM
     Route: 065
     Dates: start: 20181206, end: 20181207
  78. ACELIO [Concomitant]
     Active Substance: ACETAMINOPHEN
     Dosage: 1600 MILLIGRAM
     Route: 065
     Dates: start: 20181214, end: 20181214
  79. FEBUXOSTAT. [Concomitant]
     Active Substance: FEBUXOSTAT
     Indication: PROPHYLAXIS
     Dosage: 60 MILLIGRAM
     Route: 065
     Dates: start: 20180728, end: 20180815
  80. CALCIUM GLUCONATE. [Concomitant]
     Active Substance: CALCIUM GLUCONATE
     Indication: HYPOCALCAEMIA
     Dosage: 15 MILLILITER
     Route: 065
     Dates: start: 20190102
  81. TAZOBACTAM SODIUM AND PIPERACILLIN SODIUM [Concomitant]
     Active Substance: PIPERACILLIN SODIUM\TAZOBACTAM SODIUM
     Dosage: 13.5 GRAM
     Route: 065
     Dates: start: 20180915, end: 20180919
  82. ACETAMINOPHEN. [Concomitant]
     Active Substance: ACETAMINOPHEN
     Dosage: 800 MILLIGRAM
     Route: 065
     Dates: start: 20180915, end: 20180915
  83. ACETAMINOPHEN. [Concomitant]
     Active Substance: ACETAMINOPHEN
     Dosage: 400 MILLIGRAM
     Route: 065
     Dates: start: 20180919, end: 20180919
  84. ACETAMINOPHEN. [Concomitant]
     Active Substance: ACETAMINOPHEN
     Dosage: 800 MILLIGRAM
     Route: 065
     Dates: start: 20180929, end: 20180930
  85. ACETAMINOPHEN. [Concomitant]
     Active Substance: ACETAMINOPHEN
     Dosage: 1200 MILLIGRAM
     Route: 065
     Dates: start: 20181002, end: 20181002
  86. ACETAMINOPHEN. [Concomitant]
     Active Substance: ACETAMINOPHEN
     Dosage: 800 MILLIGRAM
     Route: 065
     Dates: start: 20181003, end: 20181003
  87. DIMETICONE [Concomitant]
     Active Substance: DIMETHICONE
     Indication: CHRONIC GASTRITIS
     Dosage: 120 MILLIGRAM
     Route: 065
     Dates: start: 20180907, end: 20181003
  88. CALONAL [Concomitant]
     Active Substance: ACETAMINOPHEN
     Dosage: 800 MILLIGRAM
     Route: 065
     Dates: start: 20181003, end: 20181003
  89. ACELIO [Concomitant]
     Active Substance: ACETAMINOPHEN
     Dosage: 2400 MILLIGRAM
     Route: 065
     Dates: start: 20181202, end: 20181202
  90. VENETOCLAX. [Concomitant]
     Active Substance: VENETOCLAX
     Dosage: 1 DOSAGE FORMS
     Route: 048
     Dates: start: 20180802, end: 20180921
  91. LANSOPRAZOLE. [Concomitant]
     Active Substance: LANSOPRAZOLE
     Indication: CHRONIC GASTRITIS
     Dosage: 30 MILLIGRAM
     Route: 065
     Dates: start: 20180801
  92. CALCIUM GLUCONATE. [Concomitant]
     Active Substance: CALCIUM GLUCONATE
     Dosage: 15 MILLILITER
     Route: 065
     Dates: start: 20181208, end: 20181221
  93. CARBOCISTEINE [Concomitant]
     Active Substance: CARBOCYSTEINE
     Indication: NASOPHARYNGITIS
     Dosage: 1500 MILLIGRAM
     Route: 065
     Dates: start: 20180930
  94. CUBICIN [Concomitant]
     Active Substance: DAPTOMYCIN
     Indication: FEBRILE NEUTROPENIA
     Route: 065
     Dates: start: 20181226
  95. ISOTONIC SODIUM CHLORIDE [Concomitant]
     Active Substance: SODIUM CHLORIDE
     Indication: FLUID REPLACEMENT
     Dosage: 250 MILLILITER
     Route: 065
     Dates: start: 20180804
  96. ACELIO [Concomitant]
     Active Substance: ACETAMINOPHEN
     Dosage: 2400 MILLIGRAM
     Route: 065
     Dates: start: 20181212, end: 20181213
  97. ACELIO [Concomitant]
     Active Substance: ACETAMINOPHEN
     Dosage: 2400 MILLIGRAM
     Route: 065
     Dates: start: 20181217, end: 20181217

REACTIONS (2)
  - Cardiac failure [Not Recovered/Not Resolved]
  - Neutropenic colitis [Recovered/Resolved]

NARRATIVE: CASE EVENT DATE: 20180920
